FAERS Safety Report 10369256 (Version 1)
Quarter: 2014Q1

REPORT INFORMATION
  Report Type: Spontaneous
  Country: US (occurrence: None)
  Receive Date: 20140306
  Receipt Date: 20140306
  Transmission Date: 20141002
  Serious: Yes (Hospitalization)
  Sender: FDA-Public Use
  Company Number: 163-21880-13023956

PATIENT
  Age: 76 Year
  Sex: Female

DRUGS (9)
  1. REVLIMID (LENALIDOMIDE) (25 MILLIGRAM, CAPSULES) [Suspect]
     Indication: PLASMA CELL MYELOMA
     Dosage: 25 MG, 21 IN 21 D, PO
     Route: 048
     Dates: start: 20121129
  2. ALBUTEROL SULFATE (SALBUTAMOL SULFATE) (UNKNOWN) [Concomitant]
  3. AMBIEN (ZOLPIDEM TARTRATE) (UNKNOWN) [Concomitant]
  4. ATROVENT HFA (IPRATROPIUM BROMIDE) (UNKNOWN) [Concomitant]
  5. COLACE (DOCUSATE SODIUM) (UNKNOWN) [Concomitant]
  6. COUMADIN (WARFARIN SODIUM) (UNKNOWN) [Concomitant]
  7. LEVOTHYROXINE SODIUM (LEVOTHYROXINE SODIUM) (UNKNOWN) [Concomitant]
  8. MEDROL (METHYLPREDNISOLONE) (UNKNOWN) [Concomitant]
  9. FENTANYL (FENTANYL) (UNKNOWN) (FENTANYL) [Concomitant]

REACTIONS (2)
  - Pulmonary embolism [None]
  - Localised infection [None]
